FAERS Safety Report 20567299 (Version 1)
Quarter: 2022Q1

REPORT INFORMATION
  Report Type: Spontaneous
  Country: AU (occurrence: AU)
  Receive Date: 20220308
  Receipt Date: 20220308
  Transmission Date: 20220423
  Serious: Yes (Other)
  Sender: FDA-Public Use
  Company Number: AU-NOVARTISPH-NVSC2022AU053403

PATIENT
  Age: 74 Year
  Sex: Male

DRUGS (3)
  1. TELMISARTAN [Suspect]
     Active Substance: TELMISARTAN
     Indication: Hypertension
     Dosage: 20 MG
     Route: 058
     Dates: start: 20210830
  2. ATORVASTATIN [Suspect]
     Active Substance: ATORVASTATIN
     Indication: Blood cholesterol increased
     Dosage: UNK
     Route: 065
  3. PROPRANOLOL [Suspect]
     Active Substance: PROPRANOLOL HYDROCHLORIDE
     Indication: Thyroid function test abnormal
     Dosage: UNK
     Route: 065

REACTIONS (4)
  - Lentigo maligna stage III [Unknown]
  - Skin ulcer [Unknown]
  - Metastases to lymph nodes [Unknown]
  - Blood thyroid stimulating hormone decreased [Unknown]
